FAERS Safety Report 20506686 (Version 1)
Quarter: 2022Q1

REPORT INFORMATION
  Report Type: Spontaneous
  Country: US (occurrence: None)
  Receive Date: 20220222
  Receipt Date: 20220222
  Transmission Date: 20220423
  Serious: Yes (Other)
  Sender: FDA-Public Use
  Company Number: None

PATIENT
  Age: 35 Year
  Sex: Female
  Weight: 51.75 kg

DRUGS (4)
  1. SCOPOLAMINE [Suspect]
     Active Substance: SCOPOLAMINE
     Indication: Surgery
     Dates: start: 20220217, end: 20220219
  2. SCOPOLAMINE [Suspect]
     Active Substance: SCOPOLAMINE
     Indication: Nausea
  3. nurtec for migraines [Concomitant]
  4. ambien for insomnia [Concomitant]

REACTIONS (7)
  - Dizziness [None]
  - Dyscalculia [None]
  - Photophobia [None]
  - Mydriasis [None]
  - Vision blurred [None]
  - Panic attack [None]
  - Fatigue [None]

NARRATIVE: CASE EVENT DATE: 20220219
